FAERS Safety Report 7359471-3 (Version None)
Quarter: 2011Q1

REPORT INFORMATION
  Report Type: 
  Country: None (occurrence: None)
  Receive Date: 20110317
  Receipt Date: 20091218
  Transmission Date: 20110831
  Serious: No
  Sender: FDA-Public Use
  Company Number: US-PFIZER INC-2009311737

PATIENT
  Sex: Male
  Weight: 82.086 kg

DRUGS (5)
  1. NORVASC [Suspect]
  2. AMLODIPINE BESYLATE [Suspect]
     Indication: HYPERTENSION
     Dosage: 5 MG/DAY
     Dates: start: 20090101
  3. CADUET [Suspect]
     Indication: BLOOD CHOLESTEROL INCREASED
  4. ACETYLSALICYLIC ACID [Concomitant]
     Dosage: UNK
  5. CADUET [Suspect]
     Indication: HYPERTENSION
     Dosage: UNK
     Dates: start: 20090101

REACTIONS (1)
  - FATIGUE [None]
